FAERS Safety Report 6287852-8 (Version None)
Quarter: 2009Q3

REPORT INFORMATION
  Report Type: 
  Country: None (occurrence: None)
  Receive Date: 20090729
  Receipt Date: 20070618
  Transmission Date: 20100115
  Serious: Yes (Hospitalization, Other)
  Sender: FDA-Public Use
  Company Number: US-ASTRAZENECA-2006UW11469

PATIENT
  Age: 14806 Day
  Sex: Female
  Weight: 81.6 kg

DRUGS (38)
  1. SEROQUEL [Suspect]
     Indication: SCHIZOPHRENIA
     Route: 048
     Dates: start: 19970101
  2. SEROQUEL [Suspect]
     Indication: BIPOLAR DISORDER
     Route: 048
     Dates: start: 19970101
  3. SEROQUEL [Suspect]
     Indication: DEPRESSION
     Route: 048
     Dates: start: 19970101
  4. SEROQUEL [Suspect]
     Route: 048
     Dates: start: 20040101
  5. SEROQUEL [Suspect]
     Route: 048
     Dates: start: 20040101
  6. SEROQUEL [Suspect]
     Route: 048
     Dates: start: 20040101
  7. SEROQUEL [Suspect]
     Dosage: 75 MG - 200 MG
     Route: 048
     Dates: start: 20050929
  8. SEROQUEL [Suspect]
     Dosage: 75 MG - 200 MG
     Route: 048
     Dates: start: 20050929
  9. SEROQUEL [Suspect]
     Dosage: 75 MG - 200 MG
     Route: 048
     Dates: start: 20050929
  10. ZYPREXA [Suspect]
  11. GLUCOPHAGE [Concomitant]
     Indication: DIABETES MELLITUS
     Dosage: STRENGTH 10 MG, 400 MG, 500 MG, 1000 MG. DOSE 30 MG - 2000 MG DAILY
     Route: 048
  12. GLUCOPHAGE [Concomitant]
     Indication: BLOOD GLUCOSE
     Dosage: STRENGTH 10 MG, 400 MG, 500 MG, 1000 MG. DOSE 30 MG - 2000 MG DAILY
     Route: 048
  13. VASOTEC [Concomitant]
     Indication: CARDIAC DISORDER
     Dosage: STRENGTH 2.5 MG, 5 MG, 20 MG DOSE- 2.5 - 20 MG DAILY
  14. VASOTEC [Concomitant]
     Indication: BLOOD PRESSURE
     Dosage: STRENGTH 2.5 MG, 5 MG, 20 MG DOSE- 2.5 - 20 MG DAILY
  15. NEURONTIN [Concomitant]
     Indication: MUSCLE SPASMS
     Dosage: STRENGTH 800 MG, 1200 MG. DOSE- 1600- 2400 MG DAILY
     Route: 048
  16. HUMALOG MIX 75/25 [Concomitant]
     Dosage: 20 UNITS BEFORE BREAKFAST DAILY
     Route: 058
  17. NITROGLYCERIN [Concomitant]
     Indication: CHEST PAIN
     Dosage: 1/150 GRAIN AS REQUIRED
     Route: 060
  18. AVANDIA [Concomitant]
     Indication: BLOOD GLUCOSE
  19. ATARAX [Concomitant]
     Indication: MENTAL DISORDER
     Dosage: 25 MG ONE TO TWO EVERY FOUR TO SIX HOURS AS REQUIRED
  20. ATARAX [Concomitant]
     Indication: DIZZINESS
     Dosage: 25 MG ONE TO TWO EVERY FOUR TO SIX HOURS AS REQUIRED
  21. VICODIN [Concomitant]
     Indication: PAIN
     Dosage: ONE TO TWO EVERY FOUR HOUR AS REQUIRED
  22. LANTUS [Concomitant]
     Indication: DIABETES MELLITUS
     Dosage: 100 UNIT/ML
  23. EFFEXOR XR [Concomitant]
     Indication: DEPRESSION
     Route: 048
  24. METHADONE HCL [Concomitant]
     Indication: PAIN
     Route: 048
  25. MINIPRESS [Concomitant]
     Indication: NIGHTMARE
     Dosage: 1 MG - 2 MG
  26. MINIPRESS [Concomitant]
     Indication: BLOOD PRESSURE
     Dosage: 1 MG - 2 MG
  27. TRAZODONE [Concomitant]
     Indication: SLEEP DISORDER
  28. GLUCOTROL [Concomitant]
     Dosage: STRENGTH 5 MG, 10 MG  DOSE- 5 - 10 MG DAILY
  29. LASIX [Concomitant]
     Indication: FLUID RETENTION
  30. BUSPAR [Concomitant]
  31. RISPERDAL [Concomitant]
  32. SUPRAX [Concomitant]
     Indication: ANTI-INFECTIVE THERAPY
  33. REGLAN [Concomitant]
     Indication: IMPAIRED GASTRIC EMPTYING
  34. PROTONIX [Concomitant]
     Route: 042
  35. CYMBALTA [Concomitant]
     Indication: DEPRESSION
     Dosage: 60 MG - 660 MG
     Route: 048
  36. AVAPRO [Concomitant]
  37. PRILOSEC [Concomitant]
  38. MICRO-K [Concomitant]
     Route: 048

REACTIONS (10)
  - CARDIOVASCULAR DISORDER [None]
  - CONFUSIONAL STATE [None]
  - DIABETIC COMPLICATION [None]
  - DIABETIC KETOACIDOSIS [None]
  - DIABETIC NEPHROPATHY [None]
  - DIABETIC NEUROPATHY [None]
  - DIABETIC RETINOPATHY [None]
  - MENTAL DISORDER [None]
  - PAIN [None]
  - TYPE 2 DIABETES MELLITUS [None]
